FAERS Safety Report 5320733-2 (Version None)
Quarter: 2007Q2

REPORT INFORMATION
  Report Type: 
  Country: None (occurrence: None)
  Receive Date: 20070509
  Receipt Date: 20070427
  Transmission Date: 20071010
  Serious: Yes (Hospitalization, Other)
  Sender: FDA-Public Use
  Company Number: JP-PFIZER INC-2007035450

PATIENT
  Age: 50 Year
  Sex: Male

DRUGS (29)
  1. LIPITOR [Suspect]
     Dosage: DAILY DOSE:10MG
     Route: 048
  2. PREDNISOLONE [Suspect]
     Indication: RESPIRATORY DISORDER
     Route: 048
  3. DRUG, UNSPECIFIED [Concomitant]
  4. MEVALOTIN [Concomitant]
     Route: 048
  5. BEZATOL - SLOW RELEASE [Concomitant]
     Route: 048
  6. CALONAL [Concomitant]
     Route: 048
  7. STROCAIN [Concomitant]
     Route: 048
  8. INDOMETHACIN [Concomitant]
     Route: 054
  9. KETOPROFEN [Concomitant]
  10. VOLTAREN - SLOW RELEASE ^NOVARTIS^ [Concomitant]
     Route: 048
  11. KELNAC [Concomitant]
     Route: 048
  12. DOGMATYL [Concomitant]
     Route: 048
  13. MEILAX [Concomitant]
     Route: 048
  14. NITRAZEPAM [Concomitant]
     Route: 048
  15. DEPAS [Concomitant]
     Route: 048
  16. SOMELIN [Concomitant]
     Route: 048
  17. ROHYPNOL [Concomitant]
     Route: 048
  18. FLUTICASONE PROPIONATE [Concomitant]
     Route: 055
  19. SEREVENT [Concomitant]
     Route: 055
  20. UNIPHYL [Concomitant]
     Route: 048
  21. SINGULAIR [Concomitant]
     Route: 048
  22. PROCTOSEDYL OINTMENT ^ROCHE^ [Concomitant]
  23. WARFARIN SODIUM [Concomitant]
     Route: 048
  24. RENIVACE [Concomitant]
     Route: 048
  25. ASPIRIN [Concomitant]
     Route: 048
  26. INDERAL LA [Concomitant]
     Route: 048
  27. TICLOPIDINE HCL [Concomitant]
     Route: 048
  28. NITROPEN [Concomitant]
     Route: 060
  29. URALYT [Concomitant]
     Route: 048

REACTIONS (2)
  - GYNAECOMASTIA [None]
  - OSTEONECROSIS [None]
